FAERS Safety Report 24175632 (Version 1)
Quarter: 2024Q3

REPORT INFORMATION
  Report Type: Report from Study
  Country: US (occurrence: US)
  Receive Date: 20240805
  Receipt Date: 20240805
  Transmission Date: 20241016
  Serious: Yes (Other)
  Sender: INCYTE
  Company Number: US-INCYTE CORPORATION-2024IN008101

PATIENT

DRUGS (1)
  1. JAKAFI [Suspect]
     Active Substance: RUXOLITINIB
     Indication: Polycythaemia vera
     Dosage: 15 MILLIGRAM
     Route: 065

REACTIONS (4)
  - Skin cancer [Unknown]
  - Dry mouth [Not Recovered/Not Resolved]
  - Oral infection [Not Recovered/Not Resolved]
  - Tooth fracture [Not Recovered/Not Resolved]
